FAERS Safety Report 9018317 (Version 1)
Quarter: 2013Q1

REPORT INFORMATION
  Report Type: Report from Study
  Country: US (occurrence: US)
  Receive Date: 20130117
  Receipt Date: 20130117
  Transmission Date: 20140127
  Serious: Yes (Other)
  Sender: FDA-Public Use
  Company Number: US-BAYER-2013-003901

PATIENT
  Age: 45 Year
  Sex: Male

DRUGS (1)
  1. REGORAFENIB [Suspect]
     Dosage: 4 DF, QD
     Route: 048
     Dates: start: 20121115

REACTIONS (4)
  - Abasia [Recovered/Resolved]
  - Pain in extremity [None]
  - Headache [Not Recovered/Not Resolved]
  - Pain [Not Recovered/Not Resolved]
